FAERS Safety Report 10932625 (Version 1)
Quarter: 2015Q1

REPORT INFORMATION
  Report Type: Spontaneous
  Country: US (occurrence: None)
  Receive Date: 20150318
  Receipt Date: 20150318
  Transmission Date: 20150721
  Serious: No
  Sender: FDA-Public Use
  Company Number: 2015RIS00035

PATIENT
  Age: 76 Year
  Sex: Male
  Weight: 77.1 kg

DRUGS (10)
  1. VITAMIN B50 COMBINATION [Concomitant]
  2. POTASSIUM CHLORIDE. [Concomitant]
     Active Substance: POTASSIUM CHLORIDE
  3. CALCIUM [Concomitant]
     Active Substance: CALCIUM
  4. FOLIC ACID. [Concomitant]
     Active Substance: FOLIC ACID
  5. FISH OIL [Concomitant]
     Active Substance: FISH OIL
  6. OMEGA 3 [Concomitant]
     Active Substance: OMEGA-3 FATTY ACIDS
  7. CIPROFLOXACIN. [Suspect]
     Active Substance: CIPROFLOXACIN
     Indication: INFECTION PROPHYLAXIS
     Route: 048
     Dates: start: 20150223, end: 20150225
  8. METOPROLOL [Concomitant]
     Active Substance: METOPROLOL
  9. LASIX [Concomitant]
     Active Substance: FUROSEMIDE
  10. OMEGA 6 VITAMIN B [Concomitant]

REACTIONS (10)
  - Anorectal swelling [None]
  - Abasia [None]
  - Proctalgia [None]
  - Pain in extremity [None]
  - Venous thrombosis limb [None]
  - Hypercoagulation [None]
  - Rectal discharge [None]
  - Anal injury [None]
  - Anorectal discomfort [None]
  - Skin texture abnormal [None]

NARRATIVE: CASE EVENT DATE: 201502
